FAERS Safety Report 4459338-4 (Version None)
Quarter: 2004Q3

REPORT INFORMATION
  Report Type: 
  Country: None (occurrence: None)
  Receive Date: 20040924
  Receipt Date: 20040908
  Transmission Date: 20050211
  Serious: Yes (Hospitalization)
  Sender: FDA-Public Use
  Company Number: TRP_0012_2004

PATIENT
  Age: 43 Year
  Sex: Male
  Weight: 115.2136 kg

DRUGS (6)
  1. RIBAVIRIN [Suspect]
     Indication: HEPATITIS C
     Dosage: 600 MG BID PO
     Route: 048
     Dates: start: 20031128, end: 20040907
  2. INTERFERON ALFACON-1/INFERGEN/INTERMUNE/ 15 MCG [Suspect]
     Indication: HEPATITIS C
     Dosage: 15 MCG 3XWK SC
     Route: 058
     Dates: start: 20031128, end: 20040907
  3. MICRONASE [Concomitant]
  4. TYLENOL [Concomitant]
  5. PROZAC [Concomitant]
  6. MULTI-VITAMINS [Concomitant]

REACTIONS (8)
  - ABDOMINAL PAIN [None]
  - CONSTIPATION [None]
  - HYPOKALAEMIA [None]
  - NAUSEA [None]
  - PYELONEPHRITIS [None]
  - PYREXIA [None]
  - URINARY TRACT OBSTRUCTION [None]
  - VOMITING [None]
